FAERS Safety Report 11372994 (Version 1)
Quarter: 2015Q3

REPORT INFORMATION
  Report Type: Spontaneous
  Country: US (occurrence: US)
  Receive Date: 20150811
  Receipt Date: 20150811
  Transmission Date: 20151125
  Serious: No
  Sender: FDA-Public Use
  Company Number: US-ELI_LILLY_AND_COMPANY-US201201005087

PATIENT
  Sex: Female
  Weight: 134.69 kg

DRUGS (24)
  1. ADCIRCA [Suspect]
     Active Substance: TADALAFIL
     Indication: PULMONARY ARTERIAL HYPERTENSION
     Dosage: 40 MG, QD
     Dates: start: 201201, end: 20120205
  2. NEXIUM [Concomitant]
     Active Substance: ESOMEPRAZOLE MAGNESIUM
     Dosage: 40 MG, QD
  3. SINGULAIR [Concomitant]
     Active Substance: MONTELUKAST SODIUM
  4. ASA [Concomitant]
     Active Substance: ASPIRIN
     Dosage: 81 MG, 3/W
  5. VITAMIN D3 [Concomitant]
     Active Substance: CHOLECALCIFEROL
  6. ACETAZOLAMIDE. [Concomitant]
     Active Substance: ACETAZOLAMIDE
     Dosage: 250 MG, UNK
  7. PERPHENAZINE W/AMITRIPTYLINE [Concomitant]
  8. RESTORIL [Concomitant]
     Active Substance: TEMAZEPAM
     Dosage: 10 MG, UNK
  9. GLUCOSAMINE SULFATE [Concomitant]
     Active Substance: GLUCOSAMINE SULFATE
  10. VITAMIN E [Concomitant]
     Active Substance: .ALPHA.-TOCOPHEROL
  11. CENTRUM SILVER [Concomitant]
     Active Substance: VITAMINS
  12. CELEBREX [Concomitant]
     Active Substance: CELECOXIB
  13. BUMETANIDE. [Concomitant]
     Active Substance: BUMETANIDE
     Dosage: 1 MG, UNK
  14. ZAROXOLYN [Concomitant]
     Active Substance: METOLAZONE
  15. DIOVAN [Concomitant]
     Active Substance: VALSARTAN
  16. HYDROCHLOROTHIAZIDE. [Concomitant]
     Active Substance: HYDROCHLOROTHIAZIDE
  17. ADVAIR HFA [Concomitant]
     Active Substance: FLUTICASONE PROPIONATE\SALMETEROL XINAFOATE
  18. FLONASE [Concomitant]
     Active Substance: FLUTICASONE PROPIONATE
     Dosage: 120 MG, UNK
  19. OXYGEN. [Concomitant]
     Active Substance: OXYGEN
     Dosage: UNK, PRN
  20. TOPROL XL [Concomitant]
     Active Substance: METOPROLOL SUCCINATE
  21. SYNTHROID [Concomitant]
     Active Substance: LEVOTHYROXINE SODIUM
     Dosage: 75 MG, UNK
  22. KLOR-CON [Concomitant]
     Active Substance: POTASSIUM CHLORIDE
  23. ENABLEX                            /01760401/ [Concomitant]
     Active Substance: DARIFENACIN\DARIFENACIN HYDROBROMIDE
     Dosage: 15 MG, UNK
  24. FOLIC ACID. [Concomitant]
     Active Substance: FOLIC ACID

REACTIONS (4)
  - Dyspnoea [Recovering/Resolving]
  - Fatigue [Recovering/Resolving]
  - Muscle spasms [Recovering/Resolving]
  - Limb discomfort [Recovering/Resolving]
